FAERS Safety Report 8274816-8 (Version None)
Quarter: 2012Q2

REPORT INFORMATION
  Report Type: 
  Country: None (occurrence: None)
  Receive Date: 20120411
  Receipt Date: 20120403
  Transmission Date: 20120825
  Serious: Yes (Other)
  Sender: FDA-Public Use
  Company Number: BR-TEVA-331074ISR

PATIENT
  Sex: Female
  Weight: 75 kg

DRUGS (6)
  1. MANTIDAN [Concomitant]
  2. LEVOID [Concomitant]
     Indication: HYPOTHYROIDISM
  3. DIANE 35 [Concomitant]
     Indication: CONTRACEPTION
  4. PAMELOR [Concomitant]
  5. VENLAFAXINE [Concomitant]
  6. COPAXONE [Suspect]
     Indication: MULTIPLE SCLEROSIS
     Dosage: 20 MILLIGRAM;
     Route: 058
     Dates: start: 20110325, end: 20111201

REACTIONS (1)
  - HEPATITIS TOXIC [None]
